FAERS Safety Report 6191555-8 (Version None)
Quarter: 2009Q2

REPORT INFORMATION
  Report Type: 
  Country: None (occurrence: None)
  Receive Date: 20090515
  Receipt Date: 20090408
  Transmission Date: 20091009
  Serious: Yes (Hospitalization)
  Sender: FDA-Public Use
  Company Number: CH-ASTRAZENECA-2009PK01045

PATIENT
  Age: 72 Year
  Sex: Female

DRUGS (12)
  1. SEROQUEL [Suspect]
     Dosage: LONG TERM
     Route: 048
  2. TEMGESIC [Suspect]
     Route: 060
     Dates: start: 20090101
  3. LYRICA [Suspect]
     Route: 048
     Dates: start: 20081201
  4. CIPRALEX [Concomitant]
     Dosage: LONG TERM
     Route: 048
  5. LASIX [Concomitant]
     Dosage: SHORT TERM
     Route: 040
  6. ALDACTONE [Concomitant]
     Route: 048
  7. DILTIAZEM [Concomitant]
     Dosage: LOG TERM
  8. CLEXANE [Concomitant]
     Route: 042
  9. INSULIN [Concomitant]
     Dosage: LONG TERM
     Route: 058
  10. PREDNISON [Concomitant]
     Dosage: LONG TERM
     Route: 048
  11. PULMICORT-100 [Concomitant]
     Route: 055
  12. DOSPIR [Concomitant]
     Route: 055

REACTIONS (3)
  - DRUG INTERACTION [None]
  - RESPIRATORY ACIDOSIS [None]
  - RESPIRATORY DEPRESSION [None]
